FAERS Safety Report 4355044-5 (Version None)
Quarter: 2004Q2

REPORT INFORMATION
  Report Type: 
  Country: None (occurrence: None)
  Receive Date: 20040504
  Receipt Date: 20040426
  Transmission Date: 20050107
  Serious: No
  Sender: FDA-Public Use
  Company Number: 2004UW08360

PATIENT
  Age: 41 Year
  Sex: Female
  Weight: 54.4316 kg

DRUGS (5)
  1. SEROQUEL [Suspect]
     Indication: BIPOLAR DISORDER
     Dosage: 400 MG HS  PO
     Route: 048
  2. SEROQUEL [Suspect]
     Indication: MANIA
     Dosage: 400 MG HS  PO
     Route: 048
  3. SYNTHROID [Concomitant]
  4. COMBIVENT [Concomitant]
  5. PREVACID [Concomitant]

REACTIONS (2)
  - DISEASE PROGRESSION [None]
  - MYOPATHY [None]
